FAERS Safety Report 4580240-1 (Version None)
Quarter: 2005Q1

REPORT INFORMATION
  Report Type: 
  Country: None (occurrence: None)
  Receive Date: 20050214
  Receipt Date: 20040806
  Transmission Date: 20050727
  Serious: Yes (Life-Threatening)
  Sender: FDA-Public Use
  Company Number: JP-GLAXOSMITHKLINE-B0342114A

PATIENT
  Age: 74 Year
  Sex: Male

DRUGS (3)
  1. VALTREX [Suspect]
     Indication: HERPES ZOSTER
     Dosage: 1000MG THREE TIMES PER DAY
     Route: 048
     Dates: start: 20040730, end: 20040802
  2. YOUCOBAL [Concomitant]
     Indication: POST HERPETIC NEURALGIA
     Route: 048
     Dates: start: 20040730, end: 20040802
  3. TROXSIN [Concomitant]
     Route: 048
     Dates: start: 20040730, end: 20040802

REACTIONS (30)
  - ALANINE AMINOTRANSFERASE INCREASED [None]
  - ASPARTATE AMINOTRANSFERASE INCREASED [None]
  - BLOOD ALKALINE PHOSPHATASE INCREASED [None]
  - BLOOD BILIRUBIN INCREASED [None]
  - BLOOD LACTATE DEHYDROGENASE INCREASED [None]
  - BLOOD UREA INCREASED [None]
  - C-REACTIVE PROTEIN INCREASED [None]
  - DIARRHOEA [None]
  - EOSINOPHIL COUNT INCREASED [None]
  - ERYTHEMA [None]
  - GAMMA-GLUTAMYLTRANSFERASE INCREASED [None]
  - GENERALISED OEDEMA [None]
  - HYPERTHERMIA [None]
  - IMMUNOSUPPRESSION [None]
  - JAUNDICE [None]
  - KLEBSIELLA INFECTION [None]
  - LIVER DISORDER [None]
  - LUNG INFECTION [None]
  - LYMPHADENOPATHY [None]
  - MELAENA [None]
  - MUCOSAL EROSION [None]
  - OEDEMA [None]
  - ORAL CANDIDIASIS [None]
  - PNEUMONIA KLEBSIELLA [None]
  - RENAL DISORDER [None]
  - SPUTUM CULTURE POSITIVE [None]
  - STOMATITIS [None]
  - TOXIC EPIDERMAL NECROLYSIS [None]
  - VOMITING [None]
  - WHITE BLOOD CELL COUNT INCREASED [None]
